FAERS Safety Report 8991328 (Version 4)
Quarter: 2013Q2

REPORT INFORMATION
  Report Type: Spontaneous
  Country: IT (occurrence: IT)
  Receive Date: 20121230
  Receipt Date: 20130530
  Transmission Date: 20140414
  Serious: Yes (Hospitalization, Other)
  Sender: FDA-Public Use
  Company Number: IT-ALEXION PHARMACEUTICALS INC.-A201202470

PATIENT
  Age: 12 Year
  Sex: Male

DRUGS (10)
  1. SOLIRIS 300MG [Suspect]
     Indication: HAEMOLYTIC URAEMIC SYNDROME
     Dosage: 900 MG, QW
     Route: 042
     Dates: start: 20120218
  2. SOLIRIS 300MG [Suspect]
     Dosage: 1200 MG, Q2W
     Route: 042
  3. SOLIRIS 300MG [Suspect]
     Dosage: 600 MG, SINGLE
     Route: 042
     Dates: start: 20121002, end: 20121002
  4. SOLIRIS 300MG [Suspect]
     Dosage: 1200 MG, SINGLE
     Route: 042
     Dates: start: 20121031, end: 20121031
  5. SOLIRIS 300MG [Suspect]
     Dosage: 900 MG, SINGLE
     Route: 042
     Dates: start: 20121129, end: 20121129
  6. CEFIXIMA [Concomitant]
     Dosage: 400 MG, UNK
  7. ANTRA [Concomitant]
     Dosage: 20 MG, UNK
  8. ARANESP [Concomitant]
     Dosage: 30, UNK
  9. DEDIOL [Concomitant]
     Dosage: UNK, 6DROPS/DAY
  10. PARACETAMOL [Concomitant]
     Dosage: 750 MG, UNK

REACTIONS (6)
  - Lymphadenopathy [Recovered/Resolved]
  - Thrombocytopenia [Unknown]
  - Petechiae [Recovered/Resolved]
  - Pyrexia [Recovered/Resolved]
  - Asthenia [Recovered/Resolved]
  - Throat irritation [Recovered/Resolved]
